FAERS Safety Report 6373544-3 (Version None)
Quarter: 2009Q3

REPORT INFORMATION
  Report Type: 
  Country: None (occurrence: None)
  Receive Date: 20090924
  Receipt Date: 20090612
  Transmission Date: 20100115
  Serious: No
  Sender: FDA-Public Use
  Company Number: US-ASTRAZENECA-2009UW04071

PATIENT
  Age: 35 Year
  Sex: Female
  Weight: 83.9 kg

DRUGS (8)
  1. SEROQUEL [Suspect]
     Indication: ANXIETY
     Dosage: 25 MG TO 600 MG
     Route: 048
     Dates: start: 19970101
  2. SEROQUEL [Suspect]
     Indication: DEPRESSION
     Dosage: 25 MG TO 600 MG
     Route: 048
     Dates: start: 19970101
  3. ABILIFY [Concomitant]
     Dosage: 10 MG TO 15 MG
     Dates: start: 20050101, end: 20070101
  4. GEODON [Concomitant]
     Dosage: 50 MG TO 100 MG
     Dates: start: 20040101, end: 20050101
  5. RISPERDAL [Concomitant]
     Dates: start: 20060101
  6. ZYPREXA [Concomitant]
     Dates: start: 20020101
  7. SERTRALINE HCL [Concomitant]
     Dates: start: 20070101
  8. FLUOXETINE [Concomitant]
     Dosage: 20 MG TO 40 MG
     Dates: start: 20020101, end: 20040101

REACTIONS (5)
  - FIBROMYALGIA [None]
  - MIGRAINE [None]
  - OBESITY [None]
  - TYPE 2 DIABETES MELLITUS [None]
  - UPPER LIMB FRACTURE [None]
